FAERS Safety Report 8138561-1 (Version None)
Quarter: 2012Q1

REPORT INFORMATION
  Report Type: 
  Country: None (occurrence: None)
  Receive Date: 20120215
  Receipt Date: 20120201
  Transmission Date: 20120608
  Serious: Yes (Death)
  Sender: FDA-Public Use
  Company Number: US-ROCHE-1038680

PATIENT
  Sex: Female
  Weight: 78.542 kg

DRUGS (14)
  1. PEGASYS [Suspect]
     Indication: PRODUCT USED FOR UNKNOWN INDICATION
  2. FOLIC ACID [Concomitant]
  3. LEVOTHYROXINE SODIUM [Concomitant]
  4. ASCORBIC ACID [Concomitant]
  5. VITAMIN E [Concomitant]
  6. OXYCODONE HCL [Concomitant]
  7. MORPHINE [Concomitant]
  8. VITAMIN B COMPLEX CAP [Concomitant]
  9. MILK THISTLE [Concomitant]
  10. RIBAVIRIN [Suspect]
     Indication: PRODUCT USED FOR UNKNOWN INDICATION
  11. INCIVEK [Suspect]
     Indication: PRODUCT USED FOR UNKNOWN INDICATION
  12. RANITIDINE [Concomitant]
  13. GABAPENTIN [Concomitant]
  14. LORAZEPAM [Concomitant]

REACTIONS (2)
  - MYOCARDIAL INFARCTION [None]
  - THROMBOSIS [None]
